FAERS Safety Report 9047427 (Version 3)
Quarter: 2013Q1

REPORT INFORMATION
  Report Type: Spontaneous
  Country: PR (occurrence: PR)
  Receive Date: 20130125
  Receipt Date: 20130125
  Transmission Date: 20140127
  Serious: Yes (Hospitalization, Other)
  Sender: FDA-Public Use
  Company Number: PR-ABBOTT-12P-131-0990623-00

PATIENT
  Sex: Female
  Weight: 113.5 kg

DRUGS (6)
  1. HUMIRA [Suspect]
     Indication: PSORIASIS
     Route: 058
     Dates: start: 201207, end: 201212
  2. UNKNOWN MEDICATION [Concomitant]
     Indication: ANXIETY
     Route: 048
  3. UNKNOWN MEDICATION [Concomitant]
     Indication: DEPRESSION
     Route: 048
  4. UNKNOWN MEDICATION [Concomitant]
     Indication: INSOMNIA
     Route: 048
  5. UNKNOWN MEDICATION [Concomitant]
     Indication: HYPERTENSION
     Route: 048
  6. UNKNOWN MEDICATION [Concomitant]
     Indication: ANXIETY
     Route: 048

REACTIONS (3)
  - Osteoarthritis [Unknown]
  - Psoriasis [Not Recovered/Not Resolved]
  - Drug ineffective [Not Recovered/Not Resolved]
